FAERS Safety Report 5290742-0 (Version None)
Quarter: 2007Q2

REPORT INFORMATION
  Report Type: 
  Country: None (occurrence: None)
  Receive Date: 20070409
  Receipt Date: 20070403
  Transmission Date: 20071010
  Serious: Yes (Hospitalization)
  Sender: FDA-Public Use
  Company Number: HQWYE430103APR07

PATIENT
  Sex: Male
  Weight: 90 kg

DRUGS (5)
  1. PROGRAF [Suspect]
     Indication: PROPHYLAXIS AGAINST TRANSPLANT REJECTION
     Route: 048
     Dates: end: 20070403
  2. METHYLPREDNISOLONE [Suspect]
     Indication: PROPHYLAXIS AGAINST TRANSPLANT REJECTION
     Route: 048
  3. METHYLPREDNISOLONE [Suspect]
     Route: 048
     Dates: start: 20070101
  4. ZEFFIX [Concomitant]
     Indication: HEPATITIS B
     Dosage: NOT PROVIDED
     Route: 065
     Dates: start: 20060911
  5. CELLCEPT [Suspect]
     Indication: PROPHYLAXIS AGAINST TRANSPLANT REJECTION
     Route: 048
     Dates: end: 20070402

REACTIONS (2)
  - DRUG INEFFECTIVE [None]
  - LIVER TRANSPLANT REJECTION [None]
